FAERS Safety Report 20871406 (Version 1)
Quarter: 2022Q2

REPORT INFORMATION
  Report Type: Spontaneous
  Country: CN (occurrence: CN)
  Receive Date: 20220525
  Receipt Date: 20220525
  Transmission Date: 20220721
  Serious: Yes (Life-Threatening, Other)
  Sender: FDA-Public Use
  Company Number: CN-BAYER-2022A072986

PATIENT
  Age: 26 Year
  Sex: Male
  Weight: 79 kg

DRUGS (3)
  1. AVELOX [Suspect]
     Active Substance: MOXIFLOXACIN HYDROCHLORIDE
     Indication: Anti-infective therapy
     Dosage: 400 MG, QD
     Route: 048
     Dates: start: 20220516, end: 20220516
  2. CEFACLOR [Suspect]
     Active Substance: CEFACLOR
     Indication: Anti-infective therapy
     Dosage: 0.375 G, BID
     Route: 048
     Dates: start: 20220516, end: 20220516
  3. HERBALS [Suspect]
     Active Substance: HERBALS
     Indication: Anti-infective therapy
     Dosage: 1.35 G, TID
     Route: 048
     Dates: start: 20220516, end: 20220516

REACTIONS (8)
  - Shock [Recovered/Resolved]
  - Abdominal pain [Recovered/Resolved]
  - Rash [Recovered/Resolved]
  - Pruritus [Recovered/Resolved]
  - Loss of consciousness [Recovered/Resolved]
  - Flushing [Recovered/Resolved]
  - Dizziness [Recovered/Resolved]
  - Palpitations [Recovered/Resolved]

NARRATIVE: CASE EVENT DATE: 20220516
